FAERS Safety Report 12671596 (Version 1)
Quarter: 2016Q3

REPORT INFORMATION
  Report Type: Spontaneous
  Country: FR (occurrence: FR)
  Receive Date: 20160822
  Receipt Date: 20160822
  Transmission Date: 20161109
  Serious: Yes (Death, Hospitalization)
  Sender: FDA-Public Use
  Company Number: FR-STRIDES ARCOLAB LIMITED-2016SP012043

PATIENT

DRUGS (5)
  1. MYCOPHENOLATE MOFETIL. [Suspect]
     Active Substance: MYCOPHENOLATE MOFETIL
     Indication: IMMUNOSUPPRESSION
     Dosage: UNK
  2. PREDNISOLONE. [Suspect]
     Active Substance: PREDNISOLONE
     Indication: IMMUNOSUPPRESSION
     Dosage: UNK
  3. TACROLIMUS. [Suspect]
     Active Substance: TACROLIMUS
     Indication: IMMUNOSUPPRESSION
     Dosage: UNK
  4. GANCICLOVIR. [Concomitant]
     Active Substance: GANCICLOVIR
     Indication: CYTOMEGALOVIRUS INFECTION
     Dosage: UNK
  5. PIPERACILLIN AND TAZOBACTAM [Concomitant]
     Active Substance: PIPERACILLIN SODIUM\TAZOBACTAM SODIUM
     Indication: PROPHYLAXIS
     Dosage: UNK

REACTIONS (17)
  - Metabolic disorder [Unknown]
  - Hyperkalaemia [Unknown]
  - Hypoxia [Unknown]
  - Pulmonary oedema [Unknown]
  - Toxoplasmosis [Fatal]
  - Respiratory acidosis [Unknown]
  - Haemodynamic instability [Unknown]
  - Coagulopathy [Unknown]
  - Anuria [Unknown]
  - Hypercapnia [Unknown]
  - Orthopnoea [Not Recovered/Not Resolved]
  - Systemic inflammatory response syndrome [Unknown]
  - Multiple organ dysfunction syndrome [Unknown]
  - Pyrexia [Unknown]
  - Respiratory distress [Fatal]
  - Renal failure [Unknown]
  - Respiratory failure [Unknown]
